FAERS Safety Report 17924235 (Version 2)
Quarter: 2020Q3

REPORT INFORMATION
  Report Type: Report from Study
  Country: US (occurrence: US)
  Receive Date: 20200622
  Receipt Date: 20200713
  Transmission Date: 20201103
  Serious: Yes (Other)
  Sender: FDA-Public Use
  Company Number: US-EMD SERONO-9110224

PATIENT
  Sex: Female
  Weight: 54 kg

DRUGS (2)
  1. MAVENCLAD [Suspect]
     Active Substance: CLADRIBINE
     Dosage: FIRST YEAR SECOND WEEK THERAPY: TWO TABLETS ON DAY 1 AND ONE TABLET ON DAYS 2 TO 5.
     Route: 048
     Dates: start: 20190822, end: 20190826
  2. MAVENCLAD [Suspect]
     Active Substance: CLADRIBINE
     Indication: MULTIPLE SCLEROSIS
     Dosage: FIRST YEAR FIRST WEEK THERAPY: TWO TABLETS ON DAY 1 AND ONE TABLET ON DAYS 2 TO 5
     Route: 048
     Dates: start: 20190725

REACTIONS (9)
  - Off label use [Unknown]
  - Weight increased [Unknown]
  - Glomerular filtration rate decreased [Not Recovered/Not Resolved]
  - Blood urea increased [Unknown]
  - Vitamin D decreased [Unknown]
  - Blood creatine increased [Unknown]
  - Anaemia [Unknown]
  - Fluid retention [Unknown]
  - Weight decreased [Unknown]
